FAERS Safety Report 17433460 (Version 2)
Quarter: 2020Q2

REPORT INFORMATION
  Report Type: Spontaneous
  Country: DE (occurrence: DE)
  Receive Date: 20200219
  Receipt Date: 20200408
  Transmission Date: 20200713
  Serious: Yes (Hospitalization, Other)
  Sender: FDA-Public Use
  Company Number: DE-ALEXION-A202001959

PATIENT
  Age: 22 Year
  Sex: Male

DRUGS (2)
  1. SOLIRIS [Suspect]
     Active Substance: ECULIZUMAB
     Indication: ATYPICAL HAEMOLYTIC URAEMIC SYNDROME
     Dosage: UNK
     Route: 065
     Dates: start: 2013, end: 2015
  2. RITUXIMAB. [Concomitant]
     Active Substance: RITUXIMAB
     Indication: THROMBOCYTOPENIA
     Dosage: 3 CYCLES
     Route: 065
     Dates: start: 201505, end: 201506

REACTIONS (13)
  - Hepatitis E virus test positive [Unknown]
  - Jaundice [Unknown]
  - Septic shock [Unknown]
  - Leukopenia [Unknown]
  - Anaemia [Unknown]
  - Infection [Unknown]
  - Hepatic enzyme increased [Unknown]
  - Immunoglobulins decreased [Unknown]
  - Subcutaneous abscess [Unknown]
  - Sepsis [Recovering/Resolving]
  - Thrombocytopenia [Unknown]
  - Hepatitis E [Unknown]
  - Renal impairment [Unknown]

NARRATIVE: CASE EVENT DATE: 201512
